FAERS Safety Report 13882572 (Version 2)
Quarter: 2017Q3

REPORT INFORMATION
  Report Type: Spontaneous
  Country: BR (occurrence: BR)
  Receive Date: 20170818
  Receipt Date: 20170927
  Transmission Date: 20171127
  Serious: Yes (Life-Threatening, Hospitalization, Other)
  Sender: FDA-Public Use
  Company Number: BR-JNJFOC-20170724442

PATIENT
  Age: 45 Year
  Sex: Female
  Weight: 99 kg

DRUGS (12)
  1. SIMVASTATIN. [Concomitant]
     Active Substance: SIMVASTATIN
     Route: 065
  2. AMITRIPTYLINE [Concomitant]
     Active Substance: AMITRIPTYLINE
     Route: 065
  3. AAS [Concomitant]
     Active Substance: ASPIRIN
     Route: 065
  4. REMICADE [Suspect]
     Active Substance: INFLIXIMAB
     Indication: RHEUMATOID ARTHRITIS
     Route: 042
     Dates: start: 20170712
  5. CLONAZEPAM. [Concomitant]
     Active Substance: CLONAZEPAM
     Route: 065
  6. INFLIXIMAB [Suspect]
     Active Substance: INFLIXIMAB
     Indication: RHEUMATOID ARTHRITIS
     Route: 065
     Dates: start: 20170712, end: 20170918
  7. FUROSEMIDE. [Concomitant]
     Active Substance: FUROSEMIDE
     Route: 065
  8. TOCOPHEROL [Concomitant]
     Active Substance: TOCOPHEROL
     Route: 065
  9. FENOFIBRATE. [Concomitant]
     Active Substance: FENOFIBRATE
     Route: 065
  10. PREDNISONE. [Concomitant]
     Active Substance: PREDNISONE
     Indication: HEPATIC STEATOSIS
     Route: 065
  11. ASMAPEN [Concomitant]
     Route: 065
  12. LOSARTAN. [Concomitant]
     Active Substance: LOSARTAN
     Route: 065

REACTIONS (15)
  - Gastrointestinal infection [Recovered/Resolved]
  - Gastrointestinal obstruction [Recovering/Resolving]
  - Heart alternation [Unknown]
  - Bacterial infection [Recovered/Resolved]
  - Diarrhoea [Unknown]
  - Arthralgia [Unknown]
  - Wound [Unknown]
  - Ovarian cyst [Unknown]
  - Gallbladder pain [Recovered/Resolved]
  - Blood glucose increased [Unknown]
  - Lung disorder [Unknown]
  - Blood pressure decreased [Unknown]
  - Decreased immune responsiveness [Unknown]
  - Pneumonia [Unknown]
  - Hepatic cyst [Unknown]

NARRATIVE: CASE EVENT DATE: 2017
